FAERS Safety Report 25408663 (Version 1)
Quarter: 2025Q2

REPORT INFORMATION
  Report Type: Spontaneous
  Country: US (occurrence: US)
  Receive Date: 20250606
  Receipt Date: 20250606
  Transmission Date: 20250716
  Serious: No
  Sender: ASCENDIS PHARMA
  Company Number: US-ASCENDIS PHARMA-2025US009162

PATIENT

DRUGS (9)
  1. YORVIPATH [Suspect]
     Active Substance: PALOPEGTERIPARATIDE
     Indication: Hypoparathyroidism
     Route: 065
     Dates: start: 20250303
  2. YORVIPATH [Suspect]
     Active Substance: PALOPEGTERIPARATIDE
     Route: 065
     Dates: start: 20250310
  3. YORVIPATH [Suspect]
     Active Substance: PALOPEGTERIPARATIDE
     Route: 065
     Dates: start: 20250324
  4. YORVIPATH [Suspect]
     Active Substance: PALOPEGTERIPARATIDE
     Route: 065
     Dates: start: 20250404
  5. YORVIPATH [Suspect]
     Active Substance: PALOPEGTERIPARATIDE
     Route: 065
     Dates: start: 20250424
  6. ACIPHEX [Concomitant]
     Active Substance: RABEPRAZOLE SODIUM
     Indication: Gastrooesophageal reflux disease
     Route: 065
  7. ZYRTEC [Concomitant]
     Active Substance: CETIRIZINE HYDROCHLORIDE
     Indication: Hypersensitivity
     Route: 065
  8. FARXIGA [Concomitant]
     Active Substance: DAPAGLIFLOZIN PROPANEDIOL
     Indication: Chronic kidney disease
     Route: 065
  9. ALLOPURINOL [Concomitant]
     Active Substance: ALLOPURINOL
     Indication: Gout
     Route: 065

REACTIONS (3)
  - Weight decreased [Not Recovered/Not Resolved]
  - Blood calcium increased [Not Recovered/Not Resolved]
  - Off label use [Not Recovered/Not Resolved]

NARRATIVE: CASE EVENT DATE: 20250303
